FAERS Safety Report 6471215-6 (Version None)
Quarter: 2009Q4

REPORT INFORMATION
  Report Type: 
  Country: None (occurrence: None)
  Receive Date: 20091203
  Receipt Date: 20080325
  Transmission Date: 20100525
  Serious: Yes (Death)
  Sender: FDA-Public Use
  Company Number: US-ELI_LILLY_AND_COMPANY-US200802001211

PATIENT
  Age: 51 Year
  Sex: Female

DRUGS (10)
  1. ZYPREXA ZYDIS [Suspect]
     Indication: INSOMNIA
     Dosage: 15 MG, UNK
     Dates: start: 20080128
  2. CYMBALTA [Suspect]
     Dosage: 120 MG, DAILY (1/D)
  3. PROZAC [Concomitant]
  4. REQUIP [Concomitant]
     Dosage: 4 MG, EACH EVENING
  5. LYRICA [Concomitant]
  6. GEODON [Concomitant]
     Dosage: 80 MG, 2/D
  7. AMBIEN [Concomitant]
  8. BACLOFEN [Concomitant]
  9. ADVAIR DISKUS 100/50 [Concomitant]
  10. XANAX [Concomitant]

REACTIONS (3)
  - C-REACTIVE PROTEIN INCREASED [None]
  - DEATH [None]
  - HYPERSOMNIA [None]
